FAERS Safety Report 7393759-5 (Version None)
Quarter: 2011Q2

REPORT INFORMATION
  Report Type: 
  Country: None (occurrence: None)
  Receive Date: 20110405
  Receipt Date: 20110329
  Transmission Date: 20111010
  Serious: Yes (Death)
  Sender: FDA-Public Use
  Company Number: JP-ASTELLAS-2011JP002248

PATIENT
  Sex: Female
  Weight: 65 kg

DRUGS (20)
  1. TACROLIMUS MR4 CAPSULES [Suspect]
     Indication: PROPHYLAXIS AGAINST GRAFT VERSUS HOST DISEASE
     Dosage: 2.5 MG, UID/QD
     Route: 048
     Dates: start: 20100907, end: 20100910
  2. PROGRAF [Suspect]
     Indication: PROPHYLAXIS AGAINST GRAFT VERSUS HOST DISEASE
     Dosage: 1.5 MG, UNKNOWN/D
     Route: 042
  3. PROGRAF [Suspect]
     Dosage: 1.2 MG, UNKNOWN/D
     Route: 042
     Dates: start: 20100101, end: 20110105
  4. PREDONINE [Suspect]
     Dosage: 35 MG, UNKNOWN/D
     Route: 048
     Dates: start: 20100101, end: 20100101
  5. CYCLOPHOSPHAMIDE [Concomitant]
     Route: 065
  6. TACROLIMUS MR4 CAPSULES [Suspect]
     Dosage: 6.0 MG, UID/QD
     Route: 048
     Dates: start: 20100101, end: 20101208
  7. PREDONINE [Suspect]
     Dosage: 20 MG, UNKNOWN/D
     Route: 048
     Dates: start: 20100101, end: 20100101
  8. HABEKACIN [Suspect]
     Route: 065
  9. TACROLIMUS MR4 CAPSULES [Suspect]
     Dosage: 3.5 MG, UID/QD
     Dates: start: 20100914, end: 20100901
  10. PREDONINE [Suspect]
     Dosage: 55 MG, UNKNOWN/D
     Route: 042
     Dates: start: 20100101
  11. PREDONINE [Suspect]
     Dosage: 45 MG, UNKNOWN/D
     Route: 042
     Dates: end: 20110105
  12. PREDONINE [Suspect]
     Dosage: 55 MG, UNKNOWN/D
     Route: 048
     Dates: start: 20100914, end: 20100101
  13. PREDONINE [Suspect]
     Dosage: 40 MG, UNKNOWN/D
     Route: 042
     Dates: start: 20100907, end: 20100913
  14. MEROPEN [Suspect]
     Dosage: UNK
     Route: 065
  15. TACROLIMUS MR4 CAPSULES [Suspect]
     Dosage: 3.0 MG, UID/QD
     Route: 048
     Dates: start: 20100911, end: 20100913
  16. PROGRAF [Suspect]
     Dosage: 1.5 MG, UNKNOWN/D
     Route: 042
  17. PROGRAF [Suspect]
     Dosage: 0.8 MG, UNKNOWN/D
     Route: 042
     Dates: end: 20100906
  18. PROGRAF [Suspect]
     Dosage: UNK
     Route: 042
  19. MORPHINE [Suspect]
     Route: 065
  20. TACROLIMUS MR4 CAPSULES [Suspect]
     Dosage: 5.0 MG, UID/QD
     Route: 048
     Dates: start: 20100901, end: 20100101

REACTIONS (3)
  - RENAL IMPAIRMENT [None]
  - HEPATIC FUNCTION ABNORMAL [None]
  - INFECTION [None]
